FAERS Safety Report 6757968-8 (Version None)
Quarter: 2010Q2

REPORT INFORMATION
  Report Type: 
  Country: None (occurrence: None)
  Receive Date: 20100607
  Receipt Date: 20100527
  Transmission Date: 20101027
  Serious: Yes (Other)
  Sender: FDA-Public Use
  Company Number: US-AMGEN-QUU386241

PATIENT
  Sex: Female
  Weight: 84 kg

DRUGS (7)
  1. ENBREL [Suspect]
     Indication: PSORIASIS
     Route: 058
     Dates: start: 20061113, end: 20100101
  2. ENBREL [Suspect]
     Indication: PSORIATIC ARTHROPATHY
  3. AMLODIPINE [Concomitant]
  4. SIMVASTATIN [Concomitant]
  5. VITAMINS [Concomitant]
  6. VITAMIN C [Concomitant]
  7. FISH OIL [Concomitant]

REACTIONS (16)
  - ASTHMA [None]
  - BRONCHIAL HYPERREACTIVITY [None]
  - CANDIDIASIS [None]
  - COUGH [None]
  - GASTROOESOPHAGEAL REFLUX DISEASE [None]
  - HEPATIC STEATOSIS [None]
  - HERPES ZOSTER [None]
  - HIATUS HERNIA [None]
  - INTERSTITIAL LUNG DISEASE [None]
  - NEUROENDOCRINE TUMOUR [None]
  - POSTNASAL DRIP [None]
  - RESPIRATORY TRACT INFECTION [None]
  - URINARY INCONTINENCE [None]
  - URINARY TRACT INFECTION [None]
  - VIRAL INFECTION [None]
  - VOMITING [None]
